FAERS Safety Report 24756577 (Version 1)
Quarter: 2024Q4

REPORT INFORMATION
  Report Type: Report from Study
  Country: IL (occurrence: IL)
  Receive Date: 20241220
  Receipt Date: 20241220
  Transmission Date: 20250114
  Serious: Yes (Death, Hospitalization)
  Sender: ABBVIE
  Company Number: IL-ABBVIE-20K-082-3335404-00

PATIENT
  Age: 64 Year
  Sex: Male
  Weight: 85 kg

DRUGS (18)
  1. VENETOCLAX [Suspect]
     Active Substance: VENETOCLAX
     Indication: Chronic lymphocytic leukaemia
     Dosage: DURATION TEXT: RAMP-UP
     Route: 048
     Dates: start: 20200216, end: 20200222
  2. VENETOCLAX [Suspect]
     Active Substance: VENETOCLAX
     Indication: Chronic lymphocytic leukaemia
     Dosage: DURATION TEXT: RAMP-UP
     Route: 048
     Dates: start: 20200223, end: 20200229
  3. VENETOCLAX [Suspect]
     Active Substance: VENETOCLAX
     Indication: Chronic lymphocytic leukaemia
     Dosage: DURATION TEXT: RAMP-UP
     Route: 048
     Dates: start: 20200301, end: 20200307
  4. VENETOCLAX [Suspect]
     Active Substance: VENETOCLAX
     Indication: Chronic lymphocytic leukaemia
     Dosage: DURATION TEXT: RAMP-UP
     Route: 048
     Dates: start: 20200308, end: 20200314
  5. VENETOCLAX [Suspect]
     Active Substance: VENETOCLAX
     Indication: Chronic lymphocytic leukaemia
     Dosage: DURATION TEXT: MODIFICATION TO THE DAILY DOSE-DUE TO AE
     Route: 048
     Dates: start: 20200315, end: 20200321
  6. VENETOCLAX [Suspect]
     Active Substance: VENETOCLAX
     Indication: Chronic lymphocytic leukaemia
     Dosage: DURATION TEXT: DAILY DOSE MODIFICATION: DOSE INCREASE
     Route: 048
     Dates: start: 20200322, end: 20200325
  7. VENETOCLAX [Suspect]
     Active Substance: VENETOCLAX
     Indication: Chronic lymphocytic leukaemia
     Dosage: DURATION TEXT: DISCONTINUATION DUE TO  ADVERSE EVENT
     Route: 048
     Dates: start: 20200326, end: 20240414
  8. RITUXIMAB [Suspect]
     Active Substance: RITUXIMAB
     Indication: Chronic lymphocytic leukaemia
     Dosage: DURATION TEXT: CYCLE 1
     Route: 065
     Dates: start: 20200329, end: 20200329
  9. RITUXIMAB [Suspect]
     Active Substance: RITUXIMAB
     Indication: Chronic lymphocytic leukaemia
     Dosage: DURATION TEXT: CYCLE NUMBER	2
     Route: 065
     Dates: start: 20200426, end: 20200426
  10. RITUXIMAB [Suspect]
     Active Substance: RITUXIMAB
     Indication: Chronic lymphocytic leukaemia
     Dosage: DURATION TEXT: CYCLE NUMBER	3
     Route: 065
     Dates: start: 20200524, end: 20200524
  11. RITUXIMAB [Suspect]
     Active Substance: RITUXIMAB
     Indication: Chronic lymphocytic leukaemia
     Dosage: DURATION TEXT: CYCLE NUMBER	4
     Route: 065
     Dates: start: 20200621, end: 20200621
  12. RITUXIMAB [Suspect]
     Active Substance: RITUXIMAB
     Indication: Chronic lymphocytic leukaemia
     Dosage: DURATION TEXT: CYCLE NUMBER	5
     Route: 065
     Dates: start: 20200721, end: 20200721
  13. ALLOPURINOL [Concomitant]
     Active Substance: ALLOPURINOL
     Indication: Prophylaxis
     Dates: start: 20200213
  14. Clonex [Concomitant]
     Indication: Sedative therapy
     Dates: start: 2016
  15. METFORMIN HYDROCHLORIDE [Concomitant]
     Active Substance: METFORMIN HYDROCHLORIDE
     Indication: Diabetes mellitus
  16. LOSARTAN POTASSIUM [Concomitant]
     Active Substance: LOSARTAN POTASSIUM
     Indication: Hypertension
     Dates: start: 2016
  17. OMEPRAZOLE [Concomitant]
     Active Substance: OMEPRAZOLE
     Indication: Haemorrhage prophylaxis
  18. Stator [Concomitant]
     Indication: Hypercholesterolaemia

REACTIONS (10)
  - Bronchopulmonary aspergillosis [Fatal]
  - Bronchitis [Recovered/Resolved]
  - COVID-19 [Recovered/Resolved]
  - Neutrophil count decreased [Recovered/Resolved]
  - Diarrhoea [Recovered/Resolved]
  - Neutropenia [Recovered/Resolved]
  - Pneumonia [Recovered/Resolved]
  - Neutropenia [Recovered/Resolved]
  - Neutropenia [Recovered/Resolved]
  - Anaemia [Unknown]

NARRATIVE: CASE EVENT DATE: 20200216
